FAERS Safety Report 10852623 (Version 1)
Quarter: 2015Q1

REPORT INFORMATION
  Report Type: Spontaneous
  Country: US (occurrence: US)
  Receive Date: 20150222
  Receipt Date: 20150222
  Transmission Date: 20150721
  Serious: No
  Sender: FDA-Public Use
  Company Number: US-ALLERGAN-1420515US

PATIENT
  Age: 5 Decade
  Sex: Female

DRUGS (1)
  1. BOTOX [Suspect]
     Active Substance: ONABOTULINUMTOXINA
     Indication: BLEPHAROSPASM
     Dosage: 200 UNITS, SINGLE
     Dates: start: 20140822, end: 20140822

REACTIONS (5)
  - Drug effect increased [Unknown]
  - Drug administered at inappropriate site [Unknown]
  - Drug hypersensitivity [Unknown]
  - Head titubation [Unknown]
  - Muscular weakness [Unknown]
